FAERS Safety Report 8196680-8 (Version None)
Quarter: 2012Q1

REPORT INFORMATION
  Report Type: 
  Country: None (occurrence: None)
  Receive Date: 20120309
  Receipt Date: 20120228
  Transmission Date: 20120608
  Serious: Yes (Other)
  Sender: FDA-Public Use
  Company Number: US-BAYER-2011-085257

PATIENT
  Age: 36 Year
  Sex: Female
  Weight: 68 kg

DRUGS (2)
  1. YAZ [Suspect]
     Dosage: UNK
     Dates: start: 20070601
  2. YASMIN [Suspect]
     Dosage: UNK

REACTIONS (5)
  - PULMONARY EMBOLISM [None]
  - INJURY [None]
  - PAIN [None]
  - DEEP VEIN THROMBOSIS [None]
  - FEAR [None]
